FAERS Safety Report 9949152 (Version 1)
Quarter: 2014Q1

REPORT INFORMATION
  Report Type: Spontaneous
  Country: US (occurrence: PL)
  Receive Date: 20140304
  Receipt Date: 20140304
  Transmission Date: 20141002
  Serious: Yes (Hospitalization)
  Sender: FDA-Public Use
  Company Number: 2014SP001064

PATIENT
  Age: 15 Year
  Sex: Female
  Weight: 55 kg

DRUGS (1)
  1. METHOTREXATE [Suspect]
     Indication: OSTEOSARCOMA

REACTIONS (9)
  - Toxicity to various agents [Recovering/Resolving]
  - Renal impairment [Recovered/Resolved]
  - Hepatic function abnormal [Recovered/Resolved]
  - Leukopenia [Unknown]
  - Anaemia [Unknown]
  - Gastrointestinal haemorrhage [Unknown]
  - Ulcer [Unknown]
  - Drug level increased [Recovering/Resolving]
  - Injury [Recovering/Resolving]
